FAERS Safety Report 11228825 (Version 1)
Quarter: 2015Q2

REPORT INFORMATION
  Report Type: Spontaneous
  Country: US (occurrence: US)
  Receive Date: 20150630
  Receipt Date: 20150630
  Transmission Date: 20150821
  Serious: No
  Sender: FDA-Public Use
  Company Number: US-PURDUE-USA-2015-0123125

PATIENT
  Sex: Male

DRUGS (2)
  1. DRONABINOL CAPSULES [Suspect]
     Active Substance: DRONABINOL
     Indication: NEURALGIA
     Dosage: 10 MG, UNK
     Route: 048
     Dates: start: 201503
  2. DRONABINOL CAPSULES [Suspect]
     Active Substance: DRONABINOL
     Indication: MUSCLE SPASMS

REACTIONS (1)
  - Drug ineffective [Not Recovered/Not Resolved]

NARRATIVE: CASE EVENT DATE: 20150331
